FAERS Safety Report 24738039 (Version 1)
Quarter: 2024Q4

REPORT INFORMATION
  Report Type: Spontaneous
  Country: US (occurrence: US)
  Receive Date: 20241216
  Receipt Date: 20241216
  Transmission Date: 20250114
  Serious: Yes (Other)
  Sender: BIOCODEX
  Company Number: US-BIOCODEX2-2021000042

PATIENT
  Sex: Male
  Weight: 39.5 kg

DRUGS (11)
  1. DIACOMIT [Suspect]
     Active Substance: STIRIPENTOL
     Indication: Epilepsy
     Dosage: 250MG IN THE MORNING AND TWO CAPSULES OF 250MG IN THE EVENING.
     Route: 065
     Dates: start: 20200116
  2. DIACOMIT [Suspect]
     Active Substance: STIRIPENTOL
     Indication: Epilepsy
     Dosage: 250MG CAP, 10ML IN THE MORNING AND 20ML IN THE EVENING.
     Route: 065
  3. CLOBAZAM [Concomitant]
     Active Substance: CLOBAZAM
     Indication: Product used for unknown indication
     Route: 065
  4. ONFI [Concomitant]
     Active Substance: CLOBAZAM
     Indication: Product used for unknown indication
     Route: 065
  5. COENZYME Q10 [Concomitant]
     Active Substance: DIETARY SUPPLEMENT\UBIDECARENONE
     Indication: Product used for unknown indication
     Route: 065
  6. DEPAKOTE [Concomitant]
     Active Substance: DIVALPROEX SODIUM
     Indication: Product used for unknown indication
     Route: 065
  7. DIASTAT [Concomitant]
     Active Substance: DIAZEPAM
     Indication: Product use in unapproved indication
     Route: 065
  8. KEPPRA [Concomitant]
     Active Substance: LEVETIRACETAM
     Indication: Product used for unknown indication
     Route: 065
  9. LEVOCARNITINE [Concomitant]
     Active Substance: LEVOCARNITINE
     Indication: Product used for unknown indication
     Route: 065
  10. TOPIRAMATE [Concomitant]
     Active Substance: TOPIRAMATE
     Indication: Product used for unknown indication
     Route: 065
  11. VALPROIC ACID [Concomitant]
     Active Substance: VALPROIC ACID
     Indication: Product used for unknown indication
     Route: 065

REACTIONS (2)
  - Seizure [Unknown]
  - Product dose omission issue [Unknown]
